FAERS Safety Report 5063334-6 (Version None)
Quarter: 2006Q3

REPORT INFORMATION
  Report Type: 
  Country: None (occurrence: None)
  Receive Date: 20060703
  Receipt Date: 20060525
  Transmission Date: 20061208
  Serious: No
  Sender: FDA-Public Use
  Company Number: 2006PV014480

PATIENT
  Age: 49 Year
  Sex: Female

DRUGS (3)
  1. SYMLIN [Suspect]
     Indication: DRUG USE FOR UNKNOWN INDICATION
     Dosage: 120 MCG;TID;SC
     Route: 058
     Dates: start: 20060301
  2. GLUCOPHAGE [Concomitant]
  3. HUMALOG MIX 75/25 [Concomitant]

REACTIONS (1)
  - INJECTION SITE PAIN [None]
